FAERS Safety Report 24050732 (Version 2)
Quarter: 2024Q3

REPORT INFORMATION
  Report Type: Spontaneous
  Country: US (occurrence: US)
  Receive Date: 20240704
  Receipt Date: 20240823
  Transmission Date: 20241016
  Serious: No
  Sender: PFIZER
  Company Number: US-PFIZER INC-202400091240

PATIENT
  Age: 60 Year
  Sex: Female

DRUGS (2)
  1. OXBRYTA [Suspect]
     Active Substance: VOXELOTOR
     Dosage: 1500 MG, 1X/DAY (3 TABLETS ONCE DAILY)
     Route: 048
  2. OXBRYTA [Suspect]
     Active Substance: VOXELOTOR
     Dosage: 500 MG, 3X/DAY (PRESCRIPTION WAS 3 TABLETS ONCE DAILY)
     Route: 048

REACTIONS (2)
  - Skin ulcer [Recovering/Resolving]
  - Intentional product misuse [Unknown]
